FAERS Safety Report 15784862 (Version 1)
Quarter: 2019Q1

REPORT INFORMATION
  Report Type: Spontaneous
  Country: US (occurrence: US)
  Receive Date: 20190103
  Receipt Date: 20190103
  Transmission Date: 20190417
  Serious: No
  Sender: FDA-Public Use
  Company Number: US-GLENMARK PHARMACEUTICALS-2018GMK038182

PATIENT

DRUGS (1)
  1. CICLOPIROX. [Suspect]
     Active Substance: CICLOPIROX
     Indication: FUNGAL INFECTION
     Dosage: UNK
     Route: 061
     Dates: start: 20181102

REACTIONS (3)
  - Accidental exposure to product [Unknown]
  - Ocular hyperaemia [Unknown]
  - Eye disorder [Unknown]

NARRATIVE: CASE EVENT DATE: 20181102
